FAERS Safety Report 25130823 (Version 1)
Quarter: 2025Q1

REPORT INFORMATION
  Report Type: Spontaneous
  Country: JP (occurrence: JP)
  Receive Date: 20250327
  Receipt Date: 20250327
  Transmission Date: 20250408
  Serious: Yes (Death)
  Sender: MERCK SHARP & DOHME LLC
  Company Number: JP-MSD-M2025-00726

PATIENT
  Age: 8 Decade
  Sex: Male

DRUGS (3)
  1. KEYTRUDA [Suspect]
     Active Substance: PEMBROLIZUMAB
     Indication: Transitional cell cancer of the renal pelvis and ureter
     Dosage: DOSE DESCRIPTION : 200 MILLIGRAM, Q3W?DAILY DOSE : 9.4 MILLIGRAM?REGIMEN DOSE : 200  MILLIGRAM
     Route: 041
     Dates: start: 202412
  2. DENOSUMAB [Suspect]
     Active Substance: DENOSUMAB
     Indication: Metastases to bone
     Dosage: DOSE DESCRIPTION : 120 MILLIGRAM, EVERY 4 WEEKS?DAILY DOSE : 4.32 MILLIGRAM?REGIMEN DOSE : 120  M...
     Route: 041
     Dates: start: 202412
  3. PADCEV [Concomitant]
     Active Substance: ENFORTUMAB VEDOTIN-EJFV
     Indication: Transitional cell cancer of the renal pelvis and ureter
     Dosage: DOSE DESCRIPTION : 1.25 MILLIGRAM, QD?DAILY DOSE : 1.25 MILLIGRAM
     Route: 041
     Dates: start: 202412

REACTIONS (2)
  - Malignant neoplasm progression [Fatal]
  - Hypocalcaemia [Not Recovered/Not Resolved]

NARRATIVE: CASE EVENT DATE: 20250101
